FAERS Safety Report 16140862 (Version 2)
Quarter: 2020Q1

REPORT INFORMATION
  Report Type: Spontaneous
  Country: CA (occurrence: CA)
  Receive Date: 20190401
  Receipt Date: 20200316
  Transmission Date: 20200409
  Serious: Yes (Other)
  Sender: FDA-Public Use
  Company Number: CA-SA-2019SA083231

PATIENT
  Age: 57 Year
  Sex: Female

DRUGS (13)
  1. LEFLUNOMIDE. [Suspect]
     Active Substance: LEFLUNOMIDE
     Indication: PRODUCT USED FOR UNKNOWN INDICATION
  2. ENBREL [Suspect]
     Active Substance: ETANERCEPT
     Indication: RHEUMATOID ARTHRITIS
     Dosage: 50 MG
  3. LOPERAMIDE [Concomitant]
     Active Substance: LOPERAMIDE
  4. METHOTREXATE. [Concomitant]
     Active Substance: METHOTREXATE
  5. RITUXAN [Suspect]
     Active Substance: RITUXIMAB
     Indication: PRODUCT USED FOR UNKNOWN INDICATION
     Dosage: SOLUTION INTRA VENOUS
  6. PLAQUENIL [Suspect]
     Active Substance: HYDROXYCHLOROQUINE SULFATE
     Indication: PRODUCT USED FOR UNKNOWN INDICATION
  7. ORENCIA [Suspect]
     Active Substance: ABATACEPT
     Indication: PRODUCT USED FOR UNKNOWN INDICATION
  8. SALAZOPYRIN [Suspect]
     Active Substance: SULFASALAZINE
     Indication: RHEUMATOID ARTHRITIS
  9. CELEBREX [Concomitant]
     Active Substance: CELECOXIB
  10. XELJANZ [Concomitant]
     Active Substance: TOFACITINIB CITRATE
  11. ACTEMRA [Concomitant]
     Active Substance: TOCILIZUMAB
  12. BIFIDUMBACTERIN [Concomitant]
     Active Substance: BIFIDOBACTERIUM BIFIDUM
  13. PANTOPRAZOLE [Concomitant]
     Active Substance: PANTOPRAZOLE

REACTIONS (2)
  - Rheumatoid arthritis [Unknown]
  - Drug ineffective [Unknown]
